FAERS Safety Report 24417948 (Version 1)
Quarter: 2024Q4

REPORT INFORMATION
  Report Type: Spontaneous
  Country: US (occurrence: US)
  Receive Date: 20241009
  Receipt Date: 20241009
  Transmission Date: 20250115
  Serious: No
  Sender: SANDOZ
  Company Number: US-SANDOZ-SDZ2024US060871

PATIENT

DRUGS (1)
  1. HYRIMOZ [Suspect]
     Active Substance: ADALIMUMAB-ADAZ
     Indication: Product used for unknown indication
     Dosage: STRAIGHT- 40MG/0.4ML
     Route: 065

REACTIONS (3)
  - Incorrect dose administered [Unknown]
  - Device defective [Unknown]
  - Device delivery system issue [Unknown]
